FAERS Safety Report 5638438-7 (Version None)
Quarter: 2008Q1

REPORT INFORMATION
  Report Type: 
  Country: None (occurrence: None)
  Receive Date: 20080221
  Receipt Date: 20080221
  Transmission Date: 20080703
  Serious: Yes (Other)
  Sender: FDA-Public Use
  Company Number: None

PATIENT
  Sex: Female
  Weight: 75 kg

DRUGS (1)
  1. DILANTIN [Suspect]
     Dosage: 200 MG QHS

REACTIONS (4)
  - ABASIA [None]
  - ATAXIA [None]
  - CONVULSION [None]
  - NYSTAGMUS [None]
